FAERS Safety Report 7959300-0 (Version None)
Quarter: 2011Q4

REPORT INFORMATION
  Report Type: 
  Country: None (occurrence: None)
  Receive Date: 20111130
  Receipt Date: 20111118
  Transmission Date: 20120403
  Serious: Yes (Hospitalization)
  Sender: FDA-Public Use
  Company Number: 2011S1001624

PATIENT
  Age: 55 Year
  Sex: Female
  Weight: 122 kg

DRUGS (18)
  1. PREVACID [Concomitant]
  2. SPIRIVA [Concomitant]
  3. LEVOTHYROXINE SODIUM [Concomitant]
  4. LIVALO [Suspect]
     Dosage: 2 MG, 1X, PO
     Route: 048
     Dates: start: 20110801, end: 20110908
  5. ZETIA [Concomitant]
  6. MAXZIDE [Concomitant]
  7. CELEXA [Concomitant]
  8. SINGULAIR [Concomitant]
  9. CARDIZEM [Concomitant]
  10. DOXYCYCLINE [Concomitant]
  11. ULTRAM [Concomitant]
  12. RYTHMOL [Concomitant]
  13. JANUVIA [Concomitant]
  14. FLEXERIL [Concomitant]
  15. FORADIL [Concomitant]
  16. ASMANEX TWISTHALER [Concomitant]
  17. NORCO [Concomitant]
  18. GLYBURIDE [Concomitant]

REACTIONS (2)
  - MYALGIA [None]
  - MUSCLE SPASMS [None]
